FAERS Safety Report 9169077 (Version 1)
Quarter: 2013Q1

REPORT INFORMATION
  Report Type: Spontaneous
  Country: FR (occurrence: FR)
  Receive Date: 20130318
  Receipt Date: 20130318
  Transmission Date: 20140127
  Serious: Yes (Other)
  Sender: FDA-Public Use
  Company Number: FR-ROCHE-1202601

PATIENT
  Age: 57 Year
  Sex: Female

DRUGS (11)
  1. XOLAIR [Suspect]
     Indication: ASTHMA
     Route: 058
     Dates: start: 2008
  2. XOLAIR [Suspect]
     Route: 058
  3. XOLAIR [Suspect]
     Route: 058
     Dates: start: 201106
  4. XOLAIR [Suspect]
     Route: 065
     Dates: start: 20120514, end: 20120514
  5. HYDROCORTISONE [Concomitant]
  6. SEREVENT [Concomitant]
  7. SYMBICORT [Concomitant]
     Route: 065
  8. CLARITYNE [Concomitant]
  9. DIFFU K [Concomitant]
  10. VENTOLINE [Concomitant]
  11. BRICANYL [Concomitant]

REACTIONS (4)
  - Lymphadenopathy [Recovered/Resolved]
  - Eczema infected [Recovered/Resolved]
  - Alopecia [Recovered/Resolved]
  - Asthenia [Unknown]
